FAERS Safety Report 17162344 (Version 1)
Quarter: 2019Q4

REPORT INFORMATION
  Report Type: Report from Study
  Country: US (occurrence: US)
  Receive Date: 20191217
  Receipt Date: 20191217
  Transmission Date: 20200122
  Serious: Yes (Other)
  Sender: FDA-Public Use
  Company Number: US-ROCHE-2471323

PATIENT
  Age: 41 Year
  Sex: Female
  Weight: 70.37 kg

DRUGS (13)
  1. SINGULAIR [Concomitant]
     Active Substance: MONTELUKAST SODIUM
     Dosage: BREATHING
     Route: 065
     Dates: start: 2009
  2. ZYRTEC [Concomitant]
     Active Substance: CETIRIZINE HYDROCHLORIDE
     Indication: SEASONAL ALLERGY
     Dosage: PILL
     Route: 048
     Dates: start: 2000
  3. ALBUTEROL [SALBUTAMOL] [Concomitant]
     Active Substance: ALBUTEROL
     Indication: HYPERSENSITIVITY
     Route: 055
     Dates: start: 1996
  4. XOLAIR [Suspect]
     Active Substance: OMALIZUMAB
     Indication: DYSPNOEA
     Dosage: 1 SHOT IN EACH ARM, ONCE A MONTH?GEL-LIKE SOLUTION
     Route: 058
     Dates: start: 2016
  5. SINGULAIR [Concomitant]
     Active Substance: MONTELUKAST SODIUM
     Route: 048
     Dates: start: 2001
  6. BREO ELLIPTA [Concomitant]
     Active Substance: FLUTICASONE FUROATE\VILANTEROL TRIFENATATE
     Route: 055
     Dates: start: 2016
  7. ALBUTEROL SULFATE. [Concomitant]
     Active Substance: ALBUTEROL SULFATE
     Dosage: AS NEEDED 2.5MG/3 ML ;ONGOING: YES
     Route: 055
     Dates: start: 2000
  8. TRELEGY ELLIPTA [Concomitant]
     Active Substance: FLUTICASONE FUROATE\UMECLIDINIUM BROMIDE\VILANTEROL TRIFENATATE
     Route: 055
     Dates: start: 201904
  9. VENTOLIN HFA [Concomitant]
     Active Substance: ALBUTEROL SULFATE
     Dosage: AS NEEDED ;ONGOING: YES
     Route: 055
     Dates: start: 2000
  10. IBUPROFEN. [Concomitant]
     Active Substance: IBUPROFEN
     Indication: INCISION SITE PAIN
     Dosage: AS NEEDED ;ONGOING: YES
     Route: 048
     Dates: start: 2001
  11. ADVAIR HFA [Concomitant]
     Active Substance: FLUTICASONE PROPIONATE\SALMETEROL XINAFOATE
     Dosage: 500/50 ;ONGOING: NO
     Route: 055
     Dates: start: 2016
  12. VITAMIN D3 [Concomitant]
     Active Substance: CHOLECALCIFEROL
     Dosage: 2000 UNIT NOT?REPORTED
     Route: 048
     Dates: start: 2000
  13. SIMBICORT TURBUHALER [Concomitant]
     Active Substance: BUDESONIDE\FORMOTEROL FUMARATE
     Route: 055
     Dates: start: 2016, end: 2016

REACTIONS (12)
  - Pneumonia [Recovered/Resolved]
  - Malaise [Not Recovered/Not Resolved]
  - Aphonia [Recovering/Resolving]
  - Weight increased [Not Recovered/Not Resolved]
  - Sputum discoloured [Recovering/Resolving]
  - Pseudomonas infection [Recovering/Resolving]
  - Asthenia [Not Recovered/Not Resolved]
  - Fatigue [Not Recovered/Not Resolved]
  - Increased viscosity of bronchial secretion [Recovering/Resolving]
  - Chills [Recovering/Resolving]
  - Rhinorrhoea [Recovered/Resolved]
  - Cough [Recovering/Resolving]

NARRATIVE: CASE EVENT DATE: 201908
